FAERS Safety Report 21647221 (Version 1)
Quarter: 2022Q4

REPORT INFORMATION
  Report Type: Other
  Country: GB (occurrence: GB)
  Receive Date: 20221127
  Receipt Date: 20221127
  Transmission Date: 20230113
  Serious: Yes (Other)
  Sender: FDA-Public Use
  Company Number: None

PATIENT
  Sex: Female

DRUGS (3)
  1. PREDNISOLONE [Suspect]
     Active Substance: PREDNISOLONE
     Indication: Polymyalgia rheumatica
     Dosage: UNK
     Route: 065
  2. PFIZER-BIONTECH COVID-19 VACCINE [Concomitant]
     Active Substance: TOZINAMERAN
     Indication: COVID-19 immunisation
     Dosage: UNK, DOSE 3
     Route: 065
     Dates: start: 20211023, end: 20211023
  3. PFIZER-BIONTECH COVID-19 VACCINE [Concomitant]
     Active Substance: TOZINAMERAN
     Dosage: UNK, DOSE 4
     Route: 065
     Dates: start: 20220402, end: 20220402

REACTIONS (4)
  - Blood immunoglobulin M abnormal [Unknown]
  - Asthenia [Unknown]
  - Diabetes mellitus [Unknown]
  - Weight increased [Unknown]
